FAERS Safety Report 5372141-6 (Version None)
Quarter: 2007Q2

REPORT INFORMATION
  Report Type: 
  Country: None (occurrence: None)
  Receive Date: 20070627
  Receipt Date: 20070627
  Transmission Date: 20071010
  Serious: Yes (Other)
  Sender: FDA-Public Use
  Company Number: A0660102A

PATIENT
  Sex: Male

DRUGS (1)
  1. ECOTRIN ADULT LOW STRENGTH TABLETS [Suspect]
     Indication: DRUG USE FOR UNKNOWN INDICATION
     Route: 065

REACTIONS (3)
  - DEAFNESS [None]
  - EXPIRED DRUG ADMINISTERED [None]
  - TINNITUS [None]
